FAERS Safety Report 6269473-6 (Version None)
Quarter: 2009Q3

REPORT INFORMATION
  Report Type: 
  Country: None (occurrence: None)
  Receive Date: 20090715
  Receipt Date: 20081105
  Transmission Date: 20100115
  Serious: Yes (Death)
  Sender: FDA-Public Use
  Company Number: US-TYCO HEALTHCARE/MALLINCKRODT-T200801901

PATIENT

DRUGS (1)
  1. OXYCODONE [Suspect]
     Dosage: 30 MG, UNK
     Route: 048

REACTIONS (1)
  - ACCIDENTAL OVERDOSE [None]
